FAERS Safety Report 22625416 (Version 1)
Quarter: 2023Q2

REPORT INFORMATION
  Report Type: Spontaneous
  Country: US (occurrence: US)
  Receive Date: 20230621
  Receipt Date: 20230621
  Transmission Date: 20230721
  Serious: No
  Sender: FDA-Public Use
  Company Number: US-BRISTOL-MYERS SQUIBB COMPANY-2023-087391

PATIENT
  Age: 73 Year
  Sex: Female
  Weight: 61.51 kg

DRUGS (1)
  1. POMALYST [Suspect]
     Active Substance: POMALIDOMIDE
     Indication: Plasma cell myeloma
     Dosage: FREQUENCY: DAILY ON DAYS 1-14 OF 28 DAY CYCLE
     Route: 048
     Dates: start: 20220408, end: 20230209

REACTIONS (2)
  - Laboratory test abnormal [Not Recovered/Not Resolved]
  - Off label use [Unknown]
